FAERS Safety Report 25050305 (Version 1)
Quarter: 2025Q1

REPORT INFORMATION
  Report Type: Spontaneous
  Country: US (occurrence: IT)
  Receive Date: 20250307
  Receipt Date: 20250307
  Transmission Date: 20250408
  Serious: Yes (Hospitalization, Other)
  Sender: SANDOZ
  Company Number: IT-PFIZER INC-PV202400161973

PATIENT
  Age: 63 Year
  Sex: Male
  Weight: 55 kg

DRUGS (11)
  1. FLUOROURACIL [Suspect]
     Active Substance: FLUOROURACIL
     Route: 042
     Dates: start: 20241205, end: 20241207
  2. FLUOROURACIL [Suspect]
     Active Substance: FLUOROURACIL
     Indication: Neoplasm malignant
     Route: 040
     Dates: start: 20241205, end: 20241205
  3. LOPERAMIDE [Suspect]
     Active Substance: LOPERAMIDE
     Indication: Prophylaxis against diarrhoea
     Dosage: 4 MG 3X/DAY (TID)
     Route: 048
     Dates: start: 20241205, end: 20241210
  4. LEUCOVORIN [Suspect]
     Active Substance: LEUCOVORIN\LEUCOVORIN CALCIUM
     Indication: Neoplasm malignant
     Route: 042
     Dates: start: 20241205, end: 20241205
  5. OXALIPLATIN [Suspect]
     Active Substance: OXALIPLATIN
     Indication: Neoplasm malignant
     Route: 042
     Dates: start: 20241205, end: 20241205
  6. TRASTUZUMAB [Suspect]
     Active Substance: TRASTUZUMAB
     Indication: Neoplasm malignant
     Route: 042
     Dates: start: 20241120, end: 20241120
  7. TUCATINIB [Suspect]
     Active Substance: TUCATINIB
     Indication: Neoplasm malignant
     Dosage: 300 MG, 2X/DAY (BID)
     Route: 048
     Dates: start: 20241119, end: 20241210
  8. ENOXAPARIN SODIUM [Concomitant]
     Active Substance: ENOXAPARIN SODIUM
     Indication: Large intestine anastomosis
     Route: 058
     Dates: start: 20241111
  9. PANTOPRAZOLE [Concomitant]
     Active Substance: PANTOPRAZOLE
     Indication: Prophylaxis
     Route: 065
     Dates: start: 20240708
  10. ACETAMINOPHEN [Concomitant]
     Active Substance: ACETAMINOPHEN
     Indication: Large intestine anastomosis
     Route: 065
     Dates: start: 20241111
  11. ACETAMINOPHEN [Concomitant]
     Active Substance: ACETAMINOPHEN
     Route: 065
     Dates: start: 20240708

REACTIONS (2)
  - Syncope [Recovered/Resolved]
  - Diarrhoea [Unknown]

NARRATIVE: CASE EVENT DATE: 20241209
